FAERS Safety Report 5638319-9 (Version None)
Quarter: 2008Q1

REPORT INFORMATION
  Report Type: 
  Country: None (occurrence: None)
  Receive Date: 20080131
  Receipt Date: 20071113
  Transmission Date: 20080703
  Serious: No
  Sender: FDA-Public Use
  Company Number: 163-21880-07110775

PATIENT
  Sex: Male

DRUGS (2)
  1. REVLIMID [Suspect]
     Indication: MYELODYSPLASTIC SYNDROME
     Dosage: 25 MG, 1 IN 1 D, ORAL ; 5 MG, 1 IN 1 D, ORAL
     Route: 048
     Dates: start: 20070724, end: 20070801
  2. REVLIMID [Suspect]
     Indication: MYELODYSPLASTIC SYNDROME
     Dosage: 25 MG, 1 IN 1 D, ORAL ; 5 MG, 1 IN 1 D, ORAL
     Route: 048
     Dates: start: 20070824

REACTIONS (2)
  - PAIN IN EXTREMITY [None]
  - PLATELET COUNT DECREASED [None]
